FAERS Safety Report 8326509-6 (Version None)
Quarter: 2012Q2

REPORT INFORMATION
  Report Type: 
  Country: None (occurrence: None)
  Receive Date: 20120501
  Receipt Date: 20120426
  Transmission Date: 20120825
  Serious: Yes (Death)
  Sender: FDA-Public Use
  Company Number: MY-ABBOTT-12P-101-0928952-00

PATIENT
  Age: 57 Year
  Sex: Female

DRUGS (5)
  1. CALCITRIOL [Concomitant]
     Indication: RHEUMATOID ARTHRITIS
     Route: 048
  2. METFORMIN HCL [Concomitant]
     Indication: DIABETES MELLITUS
     Dosage: 1GM BD
     Route: 048
  3. ETORICOXIB [Concomitant]
     Indication: RHEUMATOID ARTHRITIS
     Route: 048
  4. METHOTREXATE [Concomitant]
     Indication: RHEUMATOID ARTHRITIS
     Route: 048
  5. HUMIRA [Suspect]
     Indication: RHEUMATOID ARTHRITIS

REACTIONS (2)
  - DEATH [None]
  - WHITE BLOOD CELL COUNT DECREASED [None]
